FAERS Safety Report 6266168-X (Version None)
Quarter: 2009Q3

REPORT INFORMATION
  Report Type: 
  Country: None (occurrence: None)
  Receive Date: 20090709
  Receipt Date: 20090703
  Transmission Date: 20100115
  Serious: Yes (Hospitalization, Disabling)
  Sender: FDA-Public Use
  Company Number: 2009SP009300

PATIENT
  Age: 51 Year
  Sex: Female
  Weight: 68.2 kg

DRUGS (14)
  1. PEG-INTRON [Suspect]
     Indication: HEPATITIS C
     Dosage: 100 MCG; SC
     Route: 058
     Dates: start: 20090315, end: 20090420
  2. PEG-INTRON [Suspect]
     Dosage: 1000 MG, PO
     Route: 048
     Dates: start: 20090315, end: 20090420
  3. ACETYLSALICYLIC ACID [Concomitant]
  4. INSULIN ASPART [Concomitant]
  5. TYLENOL (CAPLET) [Concomitant]
  6. CALCIUM [Concomitant]
  7. VITAMIN D [Concomitant]
  8. HUMALOG [Concomitant]
  9. HUMULIN R [Concomitant]
  10. NOVOLIN N [Concomitant]
  11. PREDNISONE [Concomitant]
  12. LAXATIVE [Concomitant]
  13. VALSARTAN [Concomitant]
  14. ZOPICLONE [Concomitant]

REACTIONS (5)
  - ANAEMIA [None]
  - ARTERIOSCLEROSIS [None]
  - CEREBRAL INFARCTION [None]
  - CEREBROVASCULAR ACCIDENT [None]
  - VASCULITIS CEREBRAL [None]
